FAERS Safety Report 4812196-8 (Version None)
Quarter: 2005Q4

REPORT INFORMATION
  Report Type: 
  Country: None (occurrence: None)
  Receive Date: 20051028
  Receipt Date: 20040914
  Transmission Date: 20060501
  Serious: No
  Sender: FDA-Public Use
  Company Number: US-GLAXOSMITHKLINE-A0525601A

PATIENT
  Age: 60 Year
  Sex: Female

DRUGS (4)
  1. ADVAIR DISKUS 100/50 [Suspect]
     Indication: ASTHMA
     Dosage: 1PUFF TWICE PER DAY
     Route: 055
  2. DYAZIDE [Suspect]
     Indication: HYPERTENSION
     Dosage: 1CAP PER DAY
     Route: 048
  3. PULMICORT [Concomitant]
  4. ASPIRIN [Concomitant]

REACTIONS (1)
  - EAR PAIN [None]
